FAERS Safety Report 4534916-2 (Version None)
Quarter: 2004Q4

REPORT INFORMATION
  Report Type: 
  Country: None (occurrence: None)
  Receive Date: 20041222
  Receipt Date: 20040730
  Transmission Date: 20050328
  Serious: No
  Sender: FDA-Public Use
  Company Number: US-BRISTOL-MYERS SQUIBB COMPANY-12656922

PATIENT
  Age: 78 Year
  Sex: Male
  Weight: 82 kg

DRUGS (7)
  1. PRAVACHOL [Suspect]
     Indication: BLOOD CHOLESTEROL INCREASED
     Route: 048
  2. PLAVIX [Concomitant]
  3. ATENOLOL [Concomitant]
  4. HYDROCHLOROTHIAZIDE [Concomitant]
  5. ASPIRIN [Concomitant]
  6. VITAMIN B AND C [Concomitant]
  7. KLOR-CON [Concomitant]

REACTIONS (3)
  - ANXIETY [None]
  - DIPLOPIA [None]
  - VERTIGO [None]
